FAERS Safety Report 12541795 (Version 1)
Quarter: 2016Q3

REPORT INFORMATION
  Report Type: Spontaneous
  Country: TR (occurrence: TR)
  Receive Date: 20160708
  Receipt Date: 20160708
  Transmission Date: 20161109
  Serious: Yes (Hospitalization)
  Sender: FDA-Public Use
  Company Number: TR-BAYER-2015-451271

PATIENT
  Age: 33 Year
  Sex: Male

DRUGS (4)
  1. LEVITRA [Suspect]
     Active Substance: VARDENAFIL HYDROCHLORIDE TRIHYDRATE
     Indication: ERECTILE DYSFUNCTION
     Dosage: 10 MG, ONCE
     Dates: start: 20150913
  2. CIALIS [Suspect]
     Active Substance: TADALAFIL
     Dosage: 5 MG, ONCE
     Dates: start: 20150913
  3. PRANTAL [Concomitant]
     Active Substance: DIPHEMANIL
     Dosage: 600 MG, UNK
     Dates: start: 201509
  4. EUTHYROX [Concomitant]
     Active Substance: LEVOTHYROXINE SODIUM
     Indication: GOITRE

REACTIONS (7)
  - Hyperhidrosis [None]
  - Product use issue [None]
  - Insomnia [None]
  - Diarrhoea [None]
  - Palpitations [None]
  - Unevaluable event [None]
  - Visual impairment [None]

NARRATIVE: CASE EVENT DATE: 20150913
